FAERS Safety Report 10082038 (Version 1)
Quarter: 2014Q2

REPORT INFORMATION
  Report Type: Spontaneous
  Country: PT (occurrence: PT)
  Receive Date: 20140416
  Receipt Date: 20140416
  Transmission Date: 20141212
  Serious: Yes (Hospitalization)
  Sender: FDA-Public Use
  Company Number: PT-ALLERGAN-1407519US

PATIENT
  Sex: Male

DRUGS (1)
  1. BOTOX [Suspect]
     Indication: BENIGN PROSTATIC HYPERPLASIA
     Dosage: 200 UNITS, SINGLE
     Route: 026

REACTIONS (1)
  - Prostatitis [Unknown]
